FAERS Safety Report 14296735 (Version 3)
Quarter: 2018Q1

REPORT INFORMATION
  Report Type: Spontaneous
  Country: FR (occurrence: FR)
  Receive Date: 20171218
  Receipt Date: 20180111
  Transmission Date: 20180509
  Serious: Yes (Hospitalization)
  Sender: FDA-Public Use
  Company Number: FR-009507513-1712FRA005733

PATIENT
  Age: 86 Year
  Sex: Female
  Weight: 95 kg

DRUGS (13)
  1. ORELOX [Suspect]
     Active Substance: CEFPODOXIME
     Indication: BRONCHITIS
     Dosage: 4 DF, QD
     Route: 048
     Dates: start: 20171026, end: 20171031
  2. GRAPE [Concomitant]
     Active Substance: CONCORD GRAPE\GRAPE
     Dosage: UNK
  3. PREVISCAN (FLUINDIONE) [Suspect]
     Active Substance: FLUINDIONE
     Indication: PULMONARY EMBOLISM
     Dosage: 1 DF, QD
     Route: 048
     Dates: end: 20171106
  4. LEVOTHYROX [Concomitant]
     Active Substance: LEVOTHYROXINE
     Dosage: UNK
  5. AERIUS [Suspect]
     Active Substance: DESLORATADINE
     Indication: BRONCHITIS
     Dosage: 1 DF, QD
     Route: 048
     Dates: start: 20171012, end: 20171031
  6. SOLUPRED (PREDNISOLONE SODIUM METAZOATE) [Suspect]
     Active Substance: PREDNISOLONE SODIUM METAZOATE
     Indication: BRONCHITIS
     Dosage: 40 MG, QD
     Route: 048
     Dates: start: 20171026, end: 20171031
  7. ALLOPURINOL. [Concomitant]
     Active Substance: ALLOPURINOL
     Dosage: UNK
     Dates: start: 20171024, end: 20171026
  8. DIAMICRON [Concomitant]
     Active Substance: GLICLAZIDE
     Dosage: UNK
  9. JANUVIA [Concomitant]
     Active Substance: SITAGLIPTIN PHOSPHATE
     Route: 048
  10. LASILIX [Concomitant]
     Active Substance: FUROSEMIDE
     Dosage: UNK
  11. ALLOPURINOL. [Concomitant]
     Active Substance: ALLOPURINOL
     Dosage: UNK
  12. ALLOPURINOL. [Concomitant]
     Active Substance: ALLOPURINOL
     Dosage: UNK
     Dates: start: 20171017, end: 20171021
  13. JANUVIA [Concomitant]
     Active Substance: SITAGLIPTIN PHOSPHATE
     Dosage: UNK
     Route: 048

REACTIONS (2)
  - International normalised ratio increased [Recovered/Resolved]
  - Acute generalised exanthematous pustulosis [Recovered/Resolved]

NARRATIVE: CASE EVENT DATE: 20171031
